FAERS Safety Report 6058883-8 (Version None)
Quarter: 2009Q1

REPORT INFORMATION
  Report Type: 
  Country: None (occurrence: None)
  Receive Date: 20090128
  Receipt Date: 20090128
  Transmission Date: 20090719
  Serious: Yes (Life-Threatening, Hospitalization)
  Sender: FDA-Public Use
  Company Number: None

PATIENT
  Age: 63 Year
  Sex: Male
  Weight: 117 kg

DRUGS (1)
  1. BYSTOLIC [Suspect]
     Indication: HYPERTENSION
     Dosage: 5 MG ONCE DAILY PO
     Route: 048
     Dates: start: 20080905, end: 20080919

REACTIONS (8)
  - ASTHENIA [None]
  - CHROMATURIA [None]
  - DIZZINESS [None]
  - DYSURIA [None]
  - HEPATIC CIRRHOSIS [None]
  - HYPOTENSION [None]
  - NAUSEA [None]
  - WEIGHT DECREASED [None]
